FAERS Safety Report 18922249 (Version 1)
Quarter: 2021Q1

REPORT INFORMATION
  Report Type: Spontaneous
  Country: JP (occurrence: JP)
  Receive Date: 20210222
  Receipt Date: 20210222
  Transmission Date: 20210420
  Serious: Yes (Other)
  Sender: FDA-Public Use
  Company Number: JP-GLAXOSMITHKLINE-JP2021041073

PATIENT
  Sex: Female

DRUGS (3)
  1. SULTANOL [Suspect]
     Active Substance: ALBUTEROL SULFATE
     Indication: COUGH VARIANT ASTHMA
     Dosage: 200 UG, QID
     Route: 055
  2. SULTANOL [Suspect]
     Active Substance: ALBUTEROL SULFATE
     Dosage: 200 UG, QD
     Route: 055
  3. RELVAR ELLIPTA [Suspect]
     Active Substance: FLUTICASONE FUROATE\VILANTEROL TRIFENATATE
     Indication: COUGH VARIANT ASTHMA
     Dosage: 100 UG, QD
     Route: 055

REACTIONS (9)
  - Arrhythmia [Unknown]
  - Circumstance or information capable of leading to medication error [Unknown]
  - Product use issue [Unknown]
  - Wrong technique in product usage process [Unknown]
  - Cardiac disorder [Unknown]
  - Cough [Unknown]
  - Blood pressure decreased [Unknown]
  - Blood test abnormal [Unknown]
  - Feeling hot [Unknown]

NARRATIVE: CASE EVENT DATE: 20210214
